FAERS Safety Report 12083477 (Version 1)
Quarter: 2016Q1

REPORT INFORMATION
  Report Type: Spontaneous
  Country: US (occurrence: None)
  Receive Date: 20160216
  Receipt Date: 20160216
  Transmission Date: 20160526
  Serious: Yes (Life-Threatening, Other)
  Sender: FDA-Public Use
  Company Number: None

PATIENT
  Age: 15 Year
  Sex: Male
  Weight: 43.09 kg

DRUGS (1)
  1. PAROXETINE [Suspect]
     Active Substance: PAROXETINE\PAROXETINE HYDROCHLORIDE
     Indication: DEPRESSION
     Dosage: CURRRENT?1 PILL
     Route: 048

REACTIONS (5)
  - Crying [None]
  - Anger [None]
  - Somnolence [None]
  - Agitation [None]
  - Aggression [None]

NARRATIVE: CASE EVENT DATE: 20160121
